FAERS Safety Report 5098976-5 (Version None)
Quarter: 2006Q3

REPORT INFORMATION
  Report Type: 
  Country: None (occurrence: None)
  Receive Date: 20060907
  Receipt Date: 20060828
  Transmission Date: 20061208
  Serious: Yes (Other)
  Sender: FDA-Public Use
  Company Number: FI-ABBOTT-06P-055-0342373-00

PATIENT
  Sex: Male

DRUGS (2)
  1. LIPANTHYL [Suspect]
     Indication: DRUG USE FOR UNKNOWN INDICATION
  2. LIPANTHYL [Suspect]

REACTIONS (3)
  - HYPOAESTHESIA [None]
  - INTERMITTENT CLAUDICATION [None]
  - SURGERY [None]
